FAERS Safety Report 6086063-9 (Version None)
Quarter: 2009Q1

REPORT INFORMATION
  Report Type: 
  Country: None (occurrence: None)
  Receive Date: 20090220
  Receipt Date: 20090213
  Transmission Date: 20090719
  Serious: Yes (Other)
  Sender: FDA-Public Use
  Company Number: GB-TEVA-185534ISR

PATIENT
  Age: 6 Year

DRUGS (2)
  1. METRONIDAZOLE [Suspect]
     Route: 048
  2. CEFUROXIME [Suspect]

REACTIONS (4)
  - CONDITION AGGRAVATED [None]
  - DRUG INEFFECTIVE [None]
  - PERITONITIS [None]
  - PORTAL VEIN THROMBOSIS [None]
